FAERS Safety Report 24353249 (Version 1)
Quarter: 2024Q3

REPORT INFORMATION
  Report Type: Report from Study
  Country: CL (occurrence: CL)
  Receive Date: 20240923
  Receipt Date: 20240923
  Transmission Date: 20241016
  Serious: Yes (Death, Other)
  Sender: ROCHE
  Company Number: CL-ROCHE-10000086293

PATIENT

DRUGS (1)
  1. OCRELIZUMAB [Suspect]
     Active Substance: OCRELIZUMAB
     Indication: Multiple sclerosis
     Route: 065

REACTIONS (4)
  - Infection [Unknown]
  - Infusion related reaction [Unknown]
  - Metastatic neoplasm [Fatal]
  - COVID-19 [Fatal]
